FAERS Safety Report 14683288 (Version 2)
Quarter: 2018Q2

REPORT INFORMATION
  Report Type: Spontaneous
  Country: US (occurrence: US)
  Receive Date: 20180327
  Receipt Date: 20180425
  Transmission Date: 20180711
  Serious: No
  Sender: FDA-Public Use
  Company Number: US-ASTRAZENECA-2018SE28508

PATIENT
  Age: 25539 Day
  Sex: Male
  Weight: 81.6 kg

DRUGS (4)
  1. OXYGEN. [Concomitant]
     Active Substance: OXYGEN
     Dosage: CONTINUOUSLY
  2. SPIRIVA [Concomitant]
     Active Substance: TIOTROPIUM BROMIDE MONOHYDRATE
  3. TUDORZA PRESSAIR [Suspect]
     Active Substance: ACLIDINIUM BROMIDE
     Indication: CHRONIC OBSTRUCTIVE PULMONARY DISEASE
     Route: 055
  4. PROVENTIL [Concomitant]
     Active Substance: ALBUTEROL

REACTIONS (3)
  - Drug dose omission [Not Recovered/Not Resolved]
  - Feeling abnormal [Unknown]
  - Device failure [Not Recovered/Not Resolved]

NARRATIVE: CASE EVENT DATE: 20180220
